FAERS Safety Report 8492305-2 (Version None)
Quarter: 2012Q3

REPORT INFORMATION
  Report Type: 
  Country: None (occurrence: None)
  Receive Date: 20120706
  Receipt Date: 20120629
  Transmission Date: 20120928
  Serious: No
  Sender: FDA-Public Use
  Company Number: US-PFIZER INC-2012158077

PATIENT
  Sex: Male

DRUGS (1)
  1. FLAGYL [Suspect]
     Dosage: UNK

REACTIONS (5)
  - COORDINATION ABNORMAL [None]
  - POLYURIA [None]
  - VERTIGO [None]
  - IRRITABILITY [None]
  - INSOMNIA [None]
